FAERS Safety Report 5718756-4 (Version None)
Quarter: 2008Q2

REPORT INFORMATION
  Report Type: 
  Country: None (occurrence: None)
  Receive Date: 20080423
  Receipt Date: 20080409
  Transmission Date: 20081010
  Serious: Yes (Death)
  Sender: FDA-Public Use
  Company Number: 2007BI016890

PATIENT
  Age: 55 Year
  Sex: Male

DRUGS (3)
  1. TYSABRI [Suspect]
     Indication: RELAPSING-REMITTING MULTIPLE SCLEROSIS
     Dosage: 300 MG; QM; IV
     Route: 042
     Dates: start: 20060718, end: 20070901
  2. ESCITALOPRAM [Concomitant]
  3. MIRTAZAPINE [Concomitant]

REACTIONS (3)
  - ADENOCARCINOMA PANCREAS [None]
  - HELICOBACTER GASTRITIS [None]
  - METASTASES TO LIVER [None]
